FAERS Safety Report 24434462 (Version 5)
Quarter: 2025Q1

REPORT INFORMATION
  Report Type: Spontaneous
  Country: US (occurrence: US)
  Receive Date: 20241014
  Receipt Date: 20250221
  Transmission Date: 20250409
  Serious: Yes (Hospitalization)
  Sender: BAYER HEALTHCARE PHARMACEUTICALS INC.
  Company Number: US-BAYER-2024A145077

PATIENT
  Age: 35 Year
  Sex: Female

DRUGS (5)
  1. MIRENA [Suspect]
     Active Substance: LEVONORGESTREL
     Indication: Intrauterine contraception
     Dosage: 20?G/DAY
     Route: 015
     Dates: start: 202410
  2. OPSUMIT [Concomitant]
     Active Substance: MACITENTAN
     Dosage: 36 ML, QD
  3. SILDENAFIL CITRATE [Concomitant]
     Active Substance: SILDENAFIL CITRATE
  4. TREPROSTINIL [Concomitant]
     Active Substance: TREPROSTINIL
  5. FLOLAN [Concomitant]
     Active Substance: EPOPROSTENOL SODIUM

REACTIONS (22)
  - Haematological infection [None]
  - Oxygen saturation decreased [None]
  - Dyspnoea [None]
  - Abdominal pain lower [None]
  - Nausea [None]
  - Peripheral swelling [None]
  - Chest pain [None]
  - Oxygen saturation decreased [None]
  - Diarrhoea [None]
  - Weight increased [None]
  - Dyspnoea exertional [Not Recovered/Not Resolved]
  - Dermatitis contact [None]
  - Headache [Not Recovered/Not Resolved]
  - Hyperhidrosis [None]
  - Vessel puncture site haemorrhage [None]
  - Pain in extremity [None]
  - Skin infection [None]
  - Fatigue [None]
  - General physical health deterioration [None]
  - Chest pain [None]
  - Peripheral swelling [None]
  - Joint swelling [None]
